FAERS Safety Report 14708629 (Version 3)
Quarter: 2018Q2

REPORT INFORMATION
  Report Type: Spontaneous
  Country: US (occurrence: US)
  Receive Date: 20180403
  Receipt Date: 20180418
  Transmission Date: 20180711
  Serious: No
  Sender: FDA-Public Use
  Company Number: US-GLAXOSMITHKLINE-US2018GSK055596

PATIENT
  Sex: Male
  Weight: 103.4 kg

DRUGS (1)
  1. NUCALA [Suspect]
     Active Substance: MEPOLIZUMAB
     Indication: ASTHMA
     Dosage: 100 MG/ML, UNK
     Route: 058
     Dates: start: 20170615

REACTIONS (3)
  - Blood pressure fluctuation [Unknown]
  - Pain in extremity [Unknown]
  - Joint range of motion decreased [Unknown]
